FAERS Safety Report 6912780-1 (Version None)
Quarter: 2010Q3

REPORT INFORMATION
  Report Type: 
  Country: None (occurrence: None)
  Receive Date: 20100806
  Receipt Date: 20081230
  Transmission Date: 20110219
  Serious: No
  Sender: FDA-Public Use
  Company Number: US-PFIZER INC-2009150762

PATIENT
  Sex: Male
  Weight: 90.718 kg

DRUGS (5)
  1. DETROL LA [Suspect]
     Indication: NOCTURIA
     Dosage: 4 MG, 1X/DAY
     Dates: start: 20080101, end: 20080101
  2. METFORMIN HYDROCHLORIDE [Concomitant]
     Dosage: UNK
  3. JANUVIA [Concomitant]
     Dosage: UNK
  4. TRICOR [Concomitant]
     Dosage: UNK
  5. BENICAR [Concomitant]
     Dosage: UNK

REACTIONS (3)
  - CONSTIPATION [None]
  - HEADACHE [None]
  - MUSCULOSKELETAL STIFFNESS [None]
